FAERS Safety Report 7021567-3 (Version None)
Quarter: 2010Q3

REPORT INFORMATION
  Report Type: 
  Country: None (occurrence: None)
  Receive Date: 20100928
  Receipt Date: 20100915
  Transmission Date: 20110219
  Serious: Yes (Other)
  Sender: FDA-Public Use
  Company Number: ZYD-10-AE-234

PATIENT
  Age: 69 Year
  Sex: Female

DRUGS (1)
  1. RIBAVIRIN [Suspect]

REACTIONS (8)
  - DYSURIA [None]
  - FATIGUE [None]
  - HEADACHE [None]
  - INJECTION SITE REACTION [None]
  - PAIN [None]
  - URINE COLOUR ABNORMAL [None]
  - URINE ODOUR ABNORMAL [None]
  - VERTIGO [None]
